FAERS Safety Report 5350501-7 (Version None)
Quarter: 2007Q2

REPORT INFORMATION
  Report Type: 
  Country: None (occurrence: None)
  Receive Date: 20070606
  Receipt Date: 20070606
  Transmission Date: 20071010
  Serious: Yes (Other)
  Sender: FDA-Public Use
  Company Number: None

PATIENT
  Age: 41 Year
  Sex: Male
  Weight: 96.6162 kg

DRUGS (2)
  1. LYRICA [Suspect]
     Indication: NEUROPATHY
     Dosage: SEE IMAGE
     Route: 048
     Dates: start: 20070416, end: 20070528
  2. LYRICA [Suspect]
     Indication: NEUROPATHY
     Dosage: SEE IMAGE
     Route: 048
     Dates: start: 20070528, end: 20070531

REACTIONS (10)
  - DISTURBANCE IN ATTENTION [None]
  - DRUG EFFECT DECREASED [None]
  - HEART RATE DECREASED [None]
  - JOINT SWELLING [None]
  - MYALGIA [None]
  - OEDEMA PERIPHERAL [None]
  - PALPITATIONS [None]
  - VIRAL INFECTION [None]
  - VISION BLURRED [None]
  - VISUAL DISTURBANCE [None]
